FAERS Safety Report 20633359 (Version 1)
Quarter: 2022Q1

REPORT INFORMATION
  Report Type: Spontaneous
  Country: US (occurrence: US)
  Receive Date: 20220324
  Receipt Date: 20220324
  Transmission Date: 20220423
  Serious: Yes (Other)
  Sender: FDA-Public Use
  Company Number: US-BAYER-2022A042877

PATIENT
  Sex: Female

DRUGS (1)
  1. MIRENA [Suspect]
     Active Substance: LEVONORGESTREL
     Dosage: 20?G/DAY
     Route: 015

REACTIONS (12)
  - Device breakage [None]
  - Intracranial pressure increased [None]
  - Dizziness [None]
  - Headache [None]
  - Skin mass [None]
  - Complication of device removal [None]
  - Vaginal disorder [None]
  - Uterine cervical pain [None]
  - Cervix inflammation [None]
  - Cervix oedema [None]
  - Visual impairment [None]
  - Auditory disorder [None]

NARRATIVE: CASE EVENT DATE: 20180911
